FAERS Safety Report 8022853-0 (Version None)
Quarter: 2011Q4

REPORT INFORMATION
  Report Type: 
  Country: None (occurrence: None)
  Receive Date: 20111230
  Receipt Date: 20111219
  Transmission Date: 20120403
  Serious: Yes (Life-Threatening, Hospitalization)
  Sender: FDA-Public Use
  Company Number: DSA_48614_2011

PATIENT
  Age: 52 Year
  Sex: Male

DRUGS (9)
  1. SIMVASTATIN [Concomitant]
  2. CITALOPRAM (UKNOWN) [Concomitant]
  3. RAMIPRIL [Suspect]
     Indication: PRODUCT USED FOR UNKNOWN INDICATION
     Dosage: 140 MG 1X, NOT THE PRESCRIBED AMOUNT
  4. OMEPRAZOLE [Concomitant]
  5. DILTIAZEM HYDROCHLORIDE [Suspect]
     Indication: PRODUCT USED FOR UNKNOWN INDICATION
     Dosage: 3900 MG 1X, NOT THE PRESCRIBED AMOUNT
  6. NICORANDIL (NICORANDIL) [Suspect]
     Indication: PRODUCT USED FOR UNKNOWN INDICATION
     Dosage: 120 MG 1X, NOT THE PRESCRIBED AMOUNT
  7. ISOSORBIDE MONONITRATE [Suspect]
     Indication: PRODUCT USED FOR UNKNOWN INDICATION
     Dosage: 800 MG 1X, NOT THE PRESCRIBED AMOUNT
  8. ASPIRIN [Concomitant]
  9. TAMSULOSIN HCL [Concomitant]

REACTIONS (2)
  - MULTIPLE DRUG OVERDOSE [None]
  - TOXICITY TO VARIOUS AGENTS [None]
